FAERS Safety Report 12103746 (Version 2)
Quarter: 2016Q2

REPORT INFORMATION
  Report Type: Spontaneous
  Country: US (occurrence: US)
  Receive Date: 20160223
  Receipt Date: 20160420
  Transmission Date: 20160815
  Serious: Yes (Death)
  Sender: FDA-Public Use
  Company Number: US-ROCHE-1712935

PATIENT
  Sex: Male

DRUGS (12)
  1. DEXAMETHASONE. [Concomitant]
     Active Substance: DEXAMETHASONE
     Indication: PROPHYLAXIS
     Dosage: ONCE SCHEDULED
     Route: 042
     Dates: start: 20160216, end: 20160216
  2. LOVENOX [Concomitant]
     Active Substance: ENOXAPARIN SODIUM
     Indication: THROMBOSIS PROPHYLAXIS
     Route: 058
     Dates: start: 20160212, end: 20160216
  3. ACETAMINOPHEN. [Concomitant]
     Active Substance: ACETAMINOPHEN
     Indication: PROPHYLAXIS
     Dosage: ONCE SCHEDULED
     Route: 048
     Dates: start: 20160213, end: 20160216
  4. NEXIUM [Concomitant]
     Active Substance: ESOMEPRAZOLE MAGNESIUM
     Route: 048
  5. IBRUTINIB [Concomitant]
     Active Substance: IBRUTINIB
  6. LASIX [Concomitant]
     Active Substance: FUROSEMIDE
     Indication: FLUID OVERLOAD
     Route: 042
     Dates: start: 20160212, end: 20160216
  7. IMBRUVICA [Concomitant]
     Active Substance: IBRUTINIB
     Dosage: 140MG TO 540MG DAILY
     Route: 048
  8. GAZYVA [Suspect]
     Active Substance: OBINUTUZUMAB
     Indication: MANTLE CELL LYMPHOMA
     Dosage: ONCE SCHEDULED
     Route: 042
     Dates: start: 20160216, end: 20160216
  9. GUAIFENESIN. [Concomitant]
     Active Substance: GUAIFENESIN
     Dosage: 10MG/5ML: SYRUP
     Route: 048
  10. ALLOPURINOL. [Concomitant]
     Active Substance: ALLOPURINOL
     Indication: PROPHYLAXIS
     Route: 048
     Dates: start: 20160215, end: 20160216
  11. ONDANSETRON HCL [Concomitant]
     Active Substance: ONDANSETRON HYDROCHLORIDE
     Route: 048
  12. FUROSEMIDE. [Concomitant]
     Active Substance: FUROSEMIDE
     Route: 048
     Dates: start: 20160109

REACTIONS (1)
  - Cardiac arrest [Fatal]

NARRATIVE: CASE EVENT DATE: 20160216
